FAERS Safety Report 4301914-3 (Version None)
Quarter: 2004Q1

REPORT INFORMATION
  Report Type: 
  Country: None (occurrence: None)
  Receive Date: 20040218
  Receipt Date: 20031024
  Transmission Date: 20041129
  Serious: Yes (Other)
  Sender: FDA-Public Use
  Company Number: 200319264US

PATIENT
  Age: 65 Year
  Sex: Male

DRUGS (4)
  1. LANTUS [Suspect]
     Indication: DIABETES MELLITUS
     Dosage: 44 U QD
     Dates: start: 20031001
  2. HUMALOG [Suspect]
     Indication: DIABETES MELLITUS
     Dosage: A FEW YEARS
  3. PIOGLITAZONE HCL [Concomitant]
  4. REGULAR INSULIN [Concomitant]

REACTIONS (2)
  - BLOOD GLUCOSE DECREASED [None]
  - BLOOD GLUCOSE INCREASED [None]
